FAERS Safety Report 8530969-5 (Version None)
Quarter: 2012Q3

REPORT INFORMATION
  Report Type: 
  Country: None (occurrence: None)
  Receive Date: 20120723
  Receipt Date: 20120719
  Transmission Date: 20120928
  Serious: No
  Sender: FDA-Public Use
  Company Number: US-PFIZER INC-2006038956

PATIENT
  Sex: Male
  Weight: 73 kg

DRUGS (44)
  1. CHROMAGEN FORTE [Concomitant]
     Route: 065
  2. ULTRACET [Concomitant]
     Route: 065
  3. NABUMETONE [Concomitant]
     Route: 065
  4. NEURONTIN [Suspect]
     Dosage: 300 MG, 2X/DAY
     Route: 048
     Dates: start: 20120301
  5. ACIPHEX [Concomitant]
     Route: 065
  6. HYDROMORPHONE HYDROCHLORIDE [Concomitant]
     Indication: PAIN
     Dosage: 4 MG, 4X/DAY
  7. HYDROMORPHONE HYDROCHLORIDE [Concomitant]
     Dosage: 8 MG, 4X/DAY
  8. FENOFIBRATE [Concomitant]
     Indication: BLOOD CHOLESTEROL ABNORMAL
     Dosage: 150 MG, DAILY
  9. OMEPRAZOLE [Concomitant]
     Indication: GASTROOESOPHAGEAL REFLUX DISEASE
     Dosage: 40 MG, DAILY
  10. LYRICA [Suspect]
     Dosage: 75 MG, 1X/DAY
     Route: 048
  11. GABAPENTIN [Suspect]
     Dosage: 300 MG, 3X/DAY
     Route: 048
  12. BENTYL [Concomitant]
     Route: 065
  13. LISINOPRIL [Concomitant]
     Route: 065
  14. ACETAMINOPHEN [Concomitant]
     Route: 065
  15. HYDROMORPHONE HYDROCHLORIDE [Concomitant]
     Dosage: 16 MG, 4X/DAY
  16. LYRICA [Suspect]
     Indication: GAIT DISTURBANCE
     Dosage: 75 MG, UNK
     Route: 048
  17. PHENAZOPYRIDINE HCL TAB [Concomitant]
     Route: 065
  18. ALEVE [Concomitant]
     Route: 065
  19. TROSPIUM [Concomitant]
     Indication: BLADDER DISORDER
     Dosage: 20 MG, 2X/DAY
     Route: 048
  20. LYRICA [Suspect]
     Indication: MUSCLE SPASTICITY
     Dosage: 75 MG, 2X/DAY
     Route: 048
     Dates: start: 20060314
  21. LYRICA [Suspect]
     Dosage: UNK
     Route: 048
  22. FLOMAX [Concomitant]
     Route: 065
  23. LIPITOR [Concomitant]
     Route: 065
  24. BETHANECHOL [Concomitant]
     Route: 065
  25. TRIAMTERENE AND HYDROCHLOROTHIAZIDE [Concomitant]
     Route: 065
  26. FENOFIBRATE [Concomitant]
     Dosage: 10 MG, 1X/DAY
     Route: 048
  27. OMEPRAZOLE [Concomitant]
     Indication: HYPERCHLORHYDRIA
     Dosage: 40 MG, 1X/DAY
  28. NORVASC [Concomitant]
     Dosage: UNK
  29. HYOSCYAMINE [Concomitant]
     Route: 065
  30. IRON [Concomitant]
     Indication: ANAEMIA
     Dosage: 25 MG, DAILY
  31. NEURONTIN [Suspect]
     Indication: GAIT DISTURBANCE
     Dosage: UNK
  32. IBUPROFEN [Concomitant]
     Indication: PAIN
     Dosage: 200 MG, AS NEEDED
  33. CETIRIZINE HYDROCHLORIDE [Concomitant]
     Indication: PRURITUS
     Dosage: UNK
  34. HYDROMORPHONE [Concomitant]
     Dosage: 8 MG, UNK
  35. LYRICA [Suspect]
     Indication: MUSCULOSKELETAL STIFFNESS
     Dosage: 100 MG, UNK
     Route: 048
  36. CYMBALTA [Suspect]
     Indication: GAIT DISTURBANCE
     Dosage: UNK
  37. PERCOGESIC [Concomitant]
     Route: 065
  38. ADVIL [Concomitant]
     Route: 065
  39. TAMSULOSIN HYDROCHLORIDE [Concomitant]
     Indication: BENIGN PROSTATIC HYPERPLASIA
     Dosage: 0.4 MG, 2X/DAY
  40. AMLODIPINE BESILATE [Concomitant]
     Indication: HYPERTENSION
     Dosage: 10 MG, UNK
     Route: 048
  41. ATORVASTATIN CALCIUM [Concomitant]
     Indication: BLOOD CHOLESTEROL ABNORMAL
     Dosage: 40 MG, DAILY
  42. ASPIRIN [Concomitant]
     Indication: ANTICOAGULANT THERAPY
     Dosage: 325 MG, UNK
  43. FLOMAX [Concomitant]
     Dosage: 0.4 MG, 2X/DAY
     Route: 048
  44. ATORVASTATIN [Concomitant]
     Dosage: 10 MG, 1X/DAY

REACTIONS (7)
  - VISION BLURRED [None]
  - DRUG INEFFECTIVE [None]
  - ALBUMIN GLOBULIN RATIO INCREASED [None]
  - BLOOD IRON DECREASED [None]
  - PAIN [None]
  - DRUG LEVEL INCREASED [None]
  - GAIT DISTURBANCE [None]
